FAERS Safety Report 5398105-4 (Version None)
Quarter: 2007Q3

REPORT INFORMATION
  Report Type: 
  Country: None (occurrence: None)
  Receive Date: 20070726
  Receipt Date: 20070716
  Transmission Date: 20080115
  Serious: Yes (Other)
  Sender: FDA-Public Use
  Company Number: BR-PFIZER INC-2007058596

PATIENT
  Sex: Female

DRUGS (3)
  1. CELEBRA [Suspect]
     Indication: EYE INFLAMMATION
     Route: 048
  2. ALL OTHER THERAPEUTIC PRODUCTS [Concomitant]
     Route: 047
  3. PREDNISOLONE [Concomitant]
     Route: 048

REACTIONS (2)
  - ASTHMA [None]
  - BRONCHOSPASM [None]
